FAERS Safety Report 19202758 (Version 1)
Quarter: 2021Q2

REPORT INFORMATION
  Report Type: Spontaneous
  Country: SE (occurrence: SE)
  Receive Date: 20210430
  Receipt Date: 20210430
  Transmission Date: 20210717
  Serious: Yes (Other)
  Sender: FDA-Public Use
  Company Number: SE-TAKEDA-2021TUS026350

PATIENT
  Age: 9 Year
  Sex: Female

DRUGS (1)
  1. ELVANSE [Suspect]
     Active Substance: LISDEXAMFETAMINE DIMESYLATE
     Indication: ATTENTION DEFICIT HYPERACTIVITY DISORDER
     Dosage: 50 MG 1X1
     Route: 048
     Dates: start: 20190319, end: 20201112

REACTIONS (1)
  - Growth failure [Recovered/Resolved]

NARRATIVE: CASE EVENT DATE: 20190319
